FAERS Safety Report 25739064 (Version 2)
Quarter: 2025Q4

REPORT INFORMATION
  Report Type: Spontaneous
  Country: US (occurrence: US)
  Receive Date: 20250829
  Receipt Date: 20251122
  Transmission Date: 20260118
  Serious: No
  Sender: MDD OPERATIONS
  Company Number: US-002147023-MDD202507-002659

PATIENT
  Age: 68 Year
  Sex: Male

DRUGS (12)
  1. ONAPGO [Suspect]
     Active Substance: APOMORPHINE HYDROCHLORIDE
     Indication: Parkinson^s disease
     Dosage: NOT PROVIDED
     Dates: start: 20250715
  2. ONAPGO [Suspect]
     Active Substance: APOMORPHINE HYDROCHLORIDE
     Indication: On and off phenomenon
     Dosage: INFUSION WAS CONTINUOUS FOR 14 HOURS
     Dates: start: 20250729
  3. ONAPGO [Suspect]
     Active Substance: APOMORPHINE HYDROCHLORIDE
     Dosage: INFUSION WAS CONTINUOUS FOR 16 HOURS
     Dates: start: 20250728
  4. ONAPGO [Suspect]
     Active Substance: APOMORPHINE HYDROCHLORIDE
     Dosage: INFUSE CONTENTS OF 1 CARTRIDGE UNDER THE SKIN FOR 16 HOURS OR LESS EACH DAY. CONTINUOUS DOSE (MAXIMU
     Dates: start: 202507
  5. ONAPGO [Suspect]
     Active Substance: APOMORPHINE HYDROCHLORIDE
     Dosage: NOT PROVIDED
     Dates: start: 202507
  6. ONAPGO [Suspect]
     Active Substance: APOMORPHINE HYDROCHLORIDE
     Dosage: 3MG PER HOUR FOR 16 HOURS
     Route: 058
  7. ONAPGO [Suspect]
     Active Substance: APOMORPHINE HYDROCHLORIDE
     Dosage: 2.5MG PER HOUR FOR 16 HOURS
     Route: 058
     Dates: start: 20250715
  8. ONAPGO [Suspect]
     Active Substance: APOMORPHINE HYDROCHLORIDE
     Dosage: 3.5MG PER HOUR
     Route: 058
  9. ONAPGO [Suspect]
     Active Substance: APOMORPHINE HYDROCHLORIDE
     Dosage: 4MG PER HOUR, FOR 16 HOURS A DAY
     Route: 058
  10. CARBIDOPA\LEVODOPA [Concomitant]
     Active Substance: CARBIDOPA\LEVODOPA
     Dosage: EACH DF CONTAINS 25-100MG EVERY 3 HOURS
  11. RASAGILINE [Concomitant]
     Active Substance: RASAGILINE
     Dosage: ONCE A DAY
  12. AMANTADINE [Concomitant]
     Active Substance: AMANTADINE
     Dosage: THREE TIMES A DAY

REACTIONS (8)
  - Abdominal discomfort [Recovered/Resolved]
  - Hyperhidrosis [Recovered/Resolved]
  - Infusion site erythema [Recovered/Resolved]
  - Infusion site rash [Recovered/Resolved]
  - Injection site nodule [Not Recovered/Not Resolved]
  - Nausea [Recovered/Resolved]
  - Dyskinesia [Recovered/Resolved]
  - Vomiting [Recovered/Resolved]

NARRATIVE: CASE EVENT DATE: 20250716
